FAERS Safety Report 5165016-9 (Version None)
Quarter: 2006Q4

REPORT INFORMATION
  Report Type: 
  Country: None (occurrence: None)
  Receive Date: 20061205
  Receipt Date: 20061128
  Transmission Date: 20070319
  Serious: Yes (Hospitalization)
  Sender: FDA-Public Use
  Company Number: US-ROXANE LABORATORIES, INC-2006-BP-13854RO

PATIENT
  Age: 52 Year
  Sex: Female

DRUGS (6)
  1. LITHIUM CARBONATE [Suspect]
     Indication: BIPOLAR DISORDER
     Route: 048
     Dates: start: 19950101, end: 20060821
  2. LEVOXYL [Concomitant]
  3. VYTORIN [Concomitant]
  4. CELEBREX [Concomitant]
  5. DIOVAN [Concomitant]
  6. STARLIX [Concomitant]

REACTIONS (16)
  - CHEST PAIN [None]
  - DEPRESSION [None]
  - DIARRHOEA [None]
  - DRUG LEVEL INCREASED [None]
  - DYSARTHRIA [None]
  - DYSPNOEA [None]
  - FEELING ABNORMAL [None]
  - GAIT DISTURBANCE [None]
  - INSOMNIA [None]
  - MALAISE [None]
  - MUSCLE CONTRACTIONS INVOLUNTARY [None]
  - NAUSEA [None]
  - POLLAKIURIA [None]
  - SPEECH DISORDER [None]
  - SWOLLEN TONGUE [None]
  - TREMOR [None]
